FAERS Safety Report 7005005-2 (Version None)
Quarter: 2010Q3

REPORT INFORMATION
  Report Type: 
  Country: None (occurrence: None)
  Receive Date: 20100921
  Receipt Date: 20100910
  Transmission Date: 20110219
  Serious: Yes (Disabling)
  Sender: FDA-Public Use
  Company Number: GB-AMGEN-US432874

PATIENT
  Sex: Female
  Weight: 91.4 kg

DRUGS (8)
  1. ENBREL [Suspect]
     Indication: PSORIATIC ARTHROPATHY
     Route: 058
     Dates: start: 20050312, end: 20100330
  2. ENBREL [Suspect]
     Indication: ANKYLOSING SPONDYLITIS
  3. CELECOXIB [Concomitant]
     Indication: ANTIINFLAMMATORY THERAPY
     Route: 048
     Dates: start: 20100420
  4. OMEPRAZOLE [Concomitant]
     Indication: GASTRIC DISORDER
     Route: 048
     Dates: start: 20010730
  5. OMEPRAZOLE [Concomitant]
     Indication: DYSPEPSIA
  6. ACETAMINOPHEN AND CODEINE PHOSPHATE [Concomitant]
     Indication: PAIN
     Dosage: DOSAGE UNSPECIFIED, PRN
     Route: 048
     Dates: start: 20050920
  7. METHOTREXATE [Concomitant]
     Indication: PSORIATIC ARTHROPATHY
     Route: 048
     Dates: start: 19910615
  8. FOLIC ACID [Concomitant]
     Indication: PROPHYLAXIS
     Dosage: 5MG DAILY FOR 6 DAYS WEEKLY
     Route: 048
     Dates: start: 20010816

REACTIONS (4)
  - ERYTHEMA [None]
  - RASH [None]
  - SWELLING [None]
  - URTICARIA [None]
